FAERS Safety Report 9994974 (Version 1)
Quarter: 2014Q1

REPORT INFORMATION
  Report Type: Spontaneous
  Country: US (occurrence: None)
  Receive Date: 20140307
  Receipt Date: 20140307
  Transmission Date: 20141002
  Serious: Yes (Disabling)
  Sender: FDA-Public Use
  Company Number: None

PATIENT
  Age: 83 Year
  Sex: Female
  Weight: 122.47 kg

DRUGS (13)
  1. CIPROFLOXACIN HCL [Suspect]
     Indication: LOCAL SWELLING
     Dosage: BY MOUTH
     Dates: start: 20131120, end: 20131122
  2. CIPROFLOXACIN HCL [Suspect]
     Indication: BLISTER
     Dosage: BY MOUTH
     Dates: start: 20131120, end: 20131122
  3. DILTIAZEM [Concomitant]
  4. LOSARTAN [Concomitant]
  5. POTASSIUM [Concomitant]
  6. ANDROPAMIDE [Concomitant]
  7. METFORMIN [Concomitant]
  8. SLIMPARIDE [Concomitant]
  9. COLESTYRAMINE POWDER [Concomitant]
  10. VITAMIN E [Concomitant]
  11. CALCIUM 600 [Concomitant]
  12. THEOGRAM M [Concomitant]
  13. FISH OIL [Concomitant]

REACTIONS (3)
  - Asthenia [None]
  - Muscular weakness [None]
  - Feeling abnormal [None]
